FAERS Safety Report 22166121 (Version 1)
Quarter: 2023Q2

REPORT INFORMATION
  Report Type: Report from Study
  Country: US (occurrence: None)
  Receive Date: 20230403
  Receipt Date: 20230403
  Transmission Date: 20230721
  Serious: Yes (Death)
  Sender: FDA-Public Use
  Company Number: 2023A074666

PATIENT
  Sex: Female
  Weight: 49.9 kg

DRUGS (20)
  1. CALQUENCE [Suspect]
     Active Substance: ACALABRUTINIB
     Indication: Chronic lymphocytic leukaemia
     Route: 048
     Dates: start: 20210525, end: 20221230
  2. ACETAMINOPHEN [Concomitant]
     Active Substance: ACETAMINOPHEN
  3. ACIDOPHILUS/PECTIN [Concomitant]
  4. ALENDRONATE SODIUM [Concomitant]
     Active Substance: ALENDRONATE SODIUM
  5. ATORVASTATIN CALCIUM [Concomitant]
     Active Substance: ATORVASTATIN CALCIUM
  6. CALCIUM CARBONATE\CHOLECALCIFEROL [Concomitant]
     Active Substance: CALCIUM CARBONATE\CHOLECALCIFEROL
  7. DIPHENHYDRAMINE [Concomitant]
     Active Substance: DIPHENHYDRAMINE
  8. FERROUS SULFATE [Concomitant]
     Active Substance: FERROUS SULFATE
  9. FLONASE ALLERGY RELIEF [Concomitant]
     Active Substance: FLUTICASONE PROPIONATE
  10. FUROSEMIDE [Concomitant]
     Active Substance: FUROSEMIDE
  11. IMBRUVICA [Concomitant]
     Active Substance: IBRUTINIB
  12. ISOSORBIDE [Concomitant]
     Active Substance: ISOSORBIDE
  13. MAGNESIUM CHLORIDE [Concomitant]
     Active Substance: MAGNESIUM CHLORIDE
  14. MIRTAZAPINE [Concomitant]
     Active Substance: MIRTAZAPINE
  15. MONTELUKAST [Concomitant]
     Active Substance: MONTELUKAST SODIUM
  16. VITAMINS [Concomitant]
     Active Substance: VITAMINS
  17. TOBRADEX [Concomitant]
     Active Substance: DEXAMETHASONE\TOBRAMYCIN
  18. TRIAMCINOLONE [Concomitant]
     Active Substance: TRIAMCINOLONE
  19. VITAMIN B12 [Concomitant]
     Active Substance: CYANOCOBALAMIN
  20. ZINC SULFATE [Concomitant]
     Active Substance: ZINC SULFATE

REACTIONS (1)
  - Death [Fatal]
